FAERS Safety Report 8229583-0 (Version None)
Quarter: 2012Q1

REPORT INFORMATION
  Report Type: 
  Country: None (occurrence: None)
  Receive Date: 20120322
  Receipt Date: 20120313
  Transmission Date: 20120608
  Serious: Yes (Hospitalization)
  Sender: FDA-Public Use
  Company Number: FR-ROCHE-1048867

PATIENT
  Sex: Female

DRUGS (12)
  1. PACLITAXEL [Suspect]
     Route: 042
     Dates: start: 20120217
  2. ESIDRIX [Concomitant]
     Route: 048
  3. METFORMIN HCL [Concomitant]
     Route: 048
  4. TRAMADOL HCL [Concomitant]
     Indication: PAIN
     Route: 048
  5. GLYBURIDE [Concomitant]
     Route: 048
  6. XELODA [Suspect]
     Indication: BREAST CANCER METASTATIC
     Route: 065
     Dates: start: 20120203, end: 20120206
  7. LOSARTAN POTASSIUM [Concomitant]
     Route: 048
  8. PERINDOPRIL ERBUMINE [Concomitant]
     Route: 048
  9. ZOFRAN [Concomitant]
     Route: 048
     Dates: start: 20120203
  10. PACLITAXEL [Suspect]
     Indication: BREAST CANCER METASTATIC
     Route: 042
     Dates: start: 20120203, end: 20120203
  11. DEXAMETHASONE [Concomitant]
     Route: 042
     Dates: start: 20120203, end: 20120203
  12. LEVOTHYROXINE SODIUM [Concomitant]
     Route: 048

REACTIONS (3)
  - RENAL FAILURE ACUTE [None]
  - VOMITING [None]
  - DEHYDRATION [None]
